FAERS Safety Report 25704354 (Version 1)
Quarter: 2025Q3

REPORT INFORMATION
  Report Type: Spontaneous
  Country: US (occurrence: US)
  Receive Date: 20250820
  Receipt Date: 20250820
  Transmission Date: 20251021
  Serious: Yes (Other)
  Sender: AUROBINDO
  Company Number: US-AUROBINDO-AUR-APL-2025-042773

PATIENT
  Age: 41 Year
  Sex: Female

DRUGS (2)
  1. WARFARIN [Suspect]
     Active Substance: WARFARIN
     Indication: Deep vein thrombosis
     Route: 065
  2. WARFARIN [Suspect]
     Active Substance: WARFARIN
     Indication: Pulmonary embolism

REACTIONS (1)
  - Pulmonary alveolar haemorrhage [Unknown]
